FAERS Safety Report 17273771 (Version 1)
Quarter: 2020Q1

REPORT INFORMATION
  Report Type: Spontaneous
  Country: BR (occurrence: BR)
  Receive Date: 20200115
  Receipt Date: 20200115
  Transmission Date: 20200409
  Serious: Yes (Other)
  Sender: FDA-Public Use
  Company Number: BR-ANIPHARMA-2020-BR-000003

PATIENT
  Age: 65 Year
  Sex: Female

DRUGS (3)
  1. LEXOTAN [Concomitant]
     Active Substance: BROMAZEPAM
     Dosage: UNK
     Route: 065
  2. ATACAND [Suspect]
     Active Substance: CANDESARTAN CILEXETIL
     Indication: HYPERTENSION
     Dosage: TO 8 MG BID / 1 TABLET OF ATACAND 16 MG IN THE MORNING AND ONE TABLET OF ATACAND 8 MG AT NIGHT/ 8 MG
     Route: 048
     Dates: start: 20160101
  3. LABIRIN [Suspect]
     Active Substance: BETAHISTINE
     Dosage: UNK
     Route: 065

REACTIONS (5)
  - Musculoskeletal pain [Unknown]
  - Product storage error [Unknown]
  - Rash [Unknown]
  - Breast cancer [Recovered/Resolved]
  - Alopecia [Unknown]
